FAERS Safety Report 15300754 (Version 3)
Quarter: 2018Q3

REPORT INFORMATION
  Report Type: Spontaneous
  Country: BR (occurrence: BR)
  Receive Date: 20180821
  Receipt Date: 20180828
  Transmission Date: 20181010
  Serious: Yes (Life-Threatening, Hospitalization, Other)
  Sender: FDA-Public Use
  Company Number: PHHY2018BR077375

PATIENT
  Sex: Female
  Weight: 64 kg

DRUGS (4)
  1. TEGRETOL [Suspect]
     Active Substance: CARBAMAZEPINE
     Indication: AMNESIA
  2. FRISIUM [Concomitant]
     Active Substance: CLOBAZAM
     Indication: AMNESIA
  3. TEGRETOL [Suspect]
     Active Substance: CARBAMAZEPINE
     Indication: EPILEPSY
     Dosage: 2 DF, QD
     Route: 048
     Dates: start: 2011
  4. FRISIUM [Concomitant]
     Active Substance: CLOBAZAM
     Indication: EPILEPSY
     Dosage: 3 TABLETS PER DAY
     Route: 065

REACTIONS (3)
  - Pain [Not Recovered/Not Resolved]
  - Thrombosis [Recovering/Resolving]
  - Epilepsy [Recovering/Resolving]
